FAERS Safety Report 7866910-8 (Version None)
Quarter: 2011Q4

REPORT INFORMATION
  Report Type: 
  Country: None (occurrence: None)
  Receive Date: 20111028
  Receipt Date: 20111019
  Transmission Date: 20120403
  Serious: Yes (Other)
  Sender: FDA-Public Use
  Company Number: US-ASTRAZENECA-2005UW06245

PATIENT
  Age: 80 Year
  Sex: Female
  Weight: 62.6 kg

DRUGS (6)
  1. CRESTOR [Suspect]
     Indication: DYSLIPIDAEMIA
     Route: 048
     Dates: end: 20070713
  2. FOSAMAX [Concomitant]
  3. CARDIZEM [Concomitant]
  4. TOPROL-XL [Suspect]
     Route: 048
  5. TOPROL-XL [Suspect]
     Indication: HYPERTENSION
     Route: 048
  6. TOPROL-XL [Suspect]
     Route: 048

REACTIONS (9)
  - NEOPLASM MALIGNANT [None]
  - COUGH [None]
  - ROAD TRAFFIC ACCIDENT [None]
  - BREAST CANCER [None]
  - MALAISE [None]
  - DEAFNESS [None]
  - VISUAL IMPAIRMENT [None]
  - SKIN CANCER [None]
  - INFLUENZA [None]
